FAERS Safety Report 15690091 (Version 1)
Quarter: 2018Q4

REPORT INFORMATION
  Report Type: Spontaneous
  Country: US (occurrence: US)
  Receive Date: 20181205
  Receipt Date: 20181205
  Transmission Date: 20190205
  Serious: Yes (Hospitalization)
  Sender: FDA-Public Use
  Company Number: US-PFIZER INC-2018497510

PATIENT
  Age: 52 Year
  Sex: Male
  Weight: 81.65 kg

DRUGS (1)
  1. SUTENT [Suspect]
     Active Substance: SUNITINIB MALATE
     Indication: RENAL CANCER
     Dosage: 50 MG, 1X/DAY(ONCE A DAY AT PM)
     Route: 048
     Dates: start: 20181125, end: 2018

REACTIONS (2)
  - Haemoglobin decreased [Not Recovered/Not Resolved]
  - Orthostatic hypertension [Unknown]

NARRATIVE: CASE EVENT DATE: 20181128
